FAERS Safety Report 7474623-X (Version None)
Quarter: 2011Q2

REPORT INFORMATION
  Report Type: 
  Country: None (occurrence: None)
  Receive Date: 20110503
  Receipt Date: 20110420
  Transmission Date: 20111010
  Serious: Yes (Life-Threatening, Hospitalization, Disabling)
  Sender: FDA-Public Use
  Company Number: FK201100618

PATIENT
  Age: 67 Year
  Sex: Male

DRUGS (3)
  1. OXALIPLATIN [Suspect]
     Indication: RECTAL CANCER
  2. XELODA [Suspect]
     Indication: RECTAL CANCER
  3. AVASTIN [Suspect]
     Indication: RECTAL CANCER

REACTIONS (3)
  - PERITONITIS [None]
  - INFECTION [None]
  - RECTAL PERFORATION [None]
